FAERS Safety Report 8996266 (Version 7)
Quarter: 2014Q4

REPORT INFORMATION
  Report Type: Spontaneous
  Country: US (occurrence: US)
  Receive Date: 20130103
  Receipt Date: 20141030
  Transmission Date: 20150529
  Serious: Yes (Hospitalization, Other)
  Sender: FDA-Public Use
  Company Number: US-009507513-1202USA03882

PATIENT
  Sex: Female
  Weight: 84.35 kg

DRUGS (5)
  1. PRILOSEC [Concomitant]
     Active Substance: OMEPRAZOLE MAGNESIUM
     Dosage: UNK
     Dates: start: 2001
  2. ALENDRONATE SODIUM. [Suspect]
     Active Substance: ALENDRONATE SODIUM
     Indication: OSTEOPOROSIS
     Dosage: 70 MG, QW
     Route: 048
     Dates: start: 20080221, end: 201006
  3. ZOLOFT [Concomitant]
     Active Substance: SERTRALINE HYDROCHLORIDE
     Indication: ANXIETY
     Dosage: UNK
     Dates: start: 1996
  4. FOSAMAX [Suspect]
     Active Substance: ALENDRONATE SODIUM
     Indication: OSTEOPOROSIS
     Dosage: 70 MG, QW
     Route: 048
     Dates: start: 20001206, end: 20080123
  5. FOSAMAX [Suspect]
     Active Substance: ALENDRONATE SODIUM
     Indication: OSTEOPENIA

REACTIONS (37)
  - Femur fracture [Recovered/Resolved]
  - Radius fracture [Unknown]
  - Dental implantation [Unknown]
  - Oral surgery [Unknown]
  - Cystitis [Unknown]
  - Viral infection [Unknown]
  - Balance disorder [Unknown]
  - Hypertension [Unknown]
  - Drug hypersensitivity [Unknown]
  - Intramedullary rod insertion [Unknown]
  - Lithotripsy [Unknown]
  - Autonomic neuropathy [Unknown]
  - Gastrooesophageal reflux disease [Unknown]
  - Bone trimming [Unknown]
  - Depression [Not Recovered/Not Resolved]
  - Bone pain [Unknown]
  - Vertigo [Unknown]
  - Intramedullary rod insertion [Unknown]
  - Low turnover osteopathy [Unknown]
  - Muscular weakness [Unknown]
  - Nephrolithiasis [Unknown]
  - Foot deformity [Unknown]
  - Cardiac murmur [Unknown]
  - Fracture nonunion [Recovered/Resolved]
  - Upper limb fracture [Unknown]
  - Medical device complication [Unknown]
  - Medical device removal [Unknown]
  - Medical device removal [Unknown]
  - Femur fracture [Recovered/Resolved]
  - Anxiety [Not Recovered/Not Resolved]
  - Tooth extraction [Unknown]
  - Blood cholesterol increased [Unknown]
  - Debridement [Unknown]
  - Neoplasm malignant [Unknown]
  - Vitamin D deficiency [Unknown]
  - Arthritis [Unknown]
  - Medical device removal [Unknown]

NARRATIVE: CASE EVENT DATE: 20030222
